FAERS Safety Report 9527092 (Version 3)
Quarter: 2013Q4

REPORT INFORMATION
  Report Type: Spontaneous
  Country: US (occurrence: US)
  Receive Date: 20130916
  Receipt Date: 20131101
  Transmission Date: 20140711
  Serious: Yes (Hospitalization)
  Sender: FDA-Public Use
  Company Number: US-TEVA-429362USA

PATIENT
  Age: 72 Year
  Sex: Female

DRUGS (5)
  1. ATENOLOL [Suspect]
     Dates: start: 20130608
  2. DILTIAZEM [Suspect]
     Dosage: 90 MILLIGRAM DAILY;
  3. METOPROLOL [Suspect]
  4. PROPANOLOL [Suspect]
  5. BISTOLIC 5MG [Suspect]

REACTIONS (14)
  - Erythema [Unknown]
  - Pruritus generalised [Unknown]
  - Burning sensation [Unknown]
  - Ear discomfort [Unknown]
  - Paraesthesia [Unknown]
  - Paraesthesia oral [Unknown]
  - Eye pruritus [Unknown]
  - Throat tightness [Unknown]
  - Hypersensitivity [Unknown]
  - Tinnitus [Unknown]
  - Abnormal dreams [Unknown]
  - Tachycardia [Unknown]
  - Blood pressure increased [Unknown]
  - Anxiety [Unknown]
